FAERS Safety Report 12682666 (Version 2)
Quarter: 2016Q3

REPORT INFORMATION
  Report Type: Spontaneous
  Country: US (occurrence: US)
  Receive Date: 20160825
  Receipt Date: 20160826
  Transmission Date: 20161109
  Serious: No
  Sender: FDA-Public Use
  Company Number: US-STRIDES ARCOLAB LIMITED-2016SP004848

PATIENT

DRUGS (2)
  1. ACARBOSE. [Suspect]
     Active Substance: ACARBOSE
     Dosage: 50 MG, 100 TABLETS FROM 100 COUNT BOTTLE(2 BOTTLES)
  2. ACARBOSE. [Suspect]
     Active Substance: ACARBOSE
     Dosage: 50 MG

REACTIONS (1)
  - Product physical issue [Unknown]
